FAERS Safety Report 23664397 (Version 1)
Quarter: 2024Q1

REPORT INFORMATION
  Report Type: Spontaneous
  Country: US (occurrence: None)
  Receive Date: 20240322
  Receipt Date: 20240322
  Transmission Date: 20240410
  Serious: Yes (Death)
  Sender: FDA-Public Use
  Company Number: 2024A069082

PATIENT
  Age: 72 Year
  Sex: Male

DRUGS (6)
  1. OLAPARIB [Suspect]
     Active Substance: OLAPARIB
     Indication: Transitional cell carcinoma
     Route: 048
  2. OLAPARIB [Suspect]
     Active Substance: OLAPARIB
     Indication: Transitional cell carcinoma
     Route: 048
  3. DURVALUMAB\TREMELIMUMAB [Suspect]
     Active Substance: DURVALUMAB\TREMELIMUMAB
     Indication: Transitional cell carcinoma
     Route: 042
  4. CISPLATIN/GEMCITABINE [Concomitant]
  5. PEMBROLIZUMAB [Concomitant]
     Active Substance: PEMBROLIZUMAB
  6. CISPLATIN/IFOSFAMIDE [Concomitant]

REACTIONS (3)
  - Malignant neoplasm progression [Fatal]
  - BRCA2 gene mutation [Fatal]
  - Drug resistance [Fatal]
